FAERS Safety Report 10290156 (Version 1)
Quarter: 2014Q3

REPORT INFORMATION
  Report Type: Spontaneous
  Country: GB (occurrence: None)
  Receive Date: 20140708
  Receipt Date: 20140708
  Transmission Date: 20150326
  Serious: Yes (Life-Threatening, Other)
  Sender: FDA-Public Use
  Company Number: AUR-APL-2014-07044

PATIENT
  Age: 55 Year
  Sex: Male
  Weight: 52 kg

DRUGS (3)
  1. TOPIRAMATE 25 MG ( TOPIRAMATE) UNKNOWN, 25 MG [Suspect]
     Active Substance: TOPIRAMATE
     Indication: MIGRAINE PROPHYLAXIS
     Route: 048
     Dates: start: 20140612, end: 20140613
  2. SUMATRIPTAN ( SUMATRIPTAN) [Concomitant]
  3. TERBINAFINE ( TERBINAFINE) [Concomitant]

REACTIONS (1)
  - Acute myocardial infarction [None]

NARRATIVE: CASE EVENT DATE: 20140613
